FAERS Safety Report 4766550-3 (Version None)
Quarter: 2005Q3

REPORT INFORMATION
  Report Type: 
  Country: None (occurrence: None)
  Receive Date: 20050909
  Receipt Date: 20050831
  Transmission Date: 20060218
  Serious: Yes (Hospitalization, Congenital Anomaly)
  Sender: FDA-Public Use
  Company Number: 033-1343-M0200033

PATIENT
  Age: 18 Month
  Sex: Male

DRUGS (4)
  1. VIRACEPT [Suspect]
     Indication: HIV INFECTION
     Dosage: ORAL
     Route: 048
  2. COMBIVIR [Suspect]
     Indication: HIV INFECTION
     Dosage: INTRAVENOUS
     Route: 042
  3. VIRAMUNE [Suspect]
     Indication: HIV INFECTION
     Dosage: ORAL
     Route: 048
  4. RETROVIR [Suspect]
     Indication: HIV INFECTION
     Dosage: INTRAVENOUS
     Route: 042

REACTIONS (5)
  - BLOOD TRIGLYCERIDES INCREASED [None]
  - DRUG EXPOSURE DURING PREGNANCY [None]
  - PSYCHOMOTOR RETARDATION [None]
  - SICKLE CELL ANAEMIA [None]
  - SPEECH DISORDER DEVELOPMENTAL [None]
